FAERS Safety Report 9002252 (Version 1)
Quarter: 2012Q4

REPORT INFORMATION
  Report Type: Spontaneous
  Country: US (occurrence: None)
  Receive Date: 20121126
  Receipt Date: 20121126
  Transmission Date: 20130627
  Serious: No
  Sender: FDA-Public Use
  Company Number: 54973 AE # 1105

PATIENT

DRUGS (1)
  1. HYLAND^S BABY TINY COLD TABLETS [Suspect]
     Route: 048

REACTIONS (1)
  - Unevaluable event [None]
